FAERS Safety Report 6863820-X (Version None)
Quarter: 2010Q3

REPORT INFORMATION
  Report Type: 
  Country: None (occurrence: None)
  Receive Date: 20100721
  Receipt Date: 20080312
  Transmission Date: 20110219
  Serious: No
  Sender: FDA-Public Use
  Company Number: US-PFIZER INC-2008024164

PATIENT
  Sex: Male
  Weight: 61.4 kg

DRUGS (8)
  1. CHANTIX [Suspect]
     Indication: SMOKING CESSATION THERAPY
     Dates: start: 20080223
  2. ZOCOR [Concomitant]
  3. PROTONIX [Concomitant]
  4. DOXEPIN HCL [Concomitant]
  5. ACETYLSALICYLIC ACID [Concomitant]
  6. INDOCIN [Concomitant]
  7. FISH OIL [Concomitant]
  8. PAXIL [Concomitant]

REACTIONS (3)
  - NAUSEA [None]
  - VISUAL ACUITY REDUCED [None]
  - VOMITING [None]
